FAERS Safety Report 23055344 (Version 3)
Quarter: 2024Q4

REPORT INFORMATION
  Report Type: Report from Study
  Country: US (occurrence: US)
  Receive Date: 20231011
  Receipt Date: 20241011
  Transmission Date: 20250114
  Serious: Yes (Hospitalization, Other)
  Sender: PARATEK PHARMACEUTICALS
  Company Number: US-PARATEK PHARMACEUTICALS, INC.-2023PTK00375

PATIENT
  Sex: Female
  Weight: 49.887 kg

DRUGS (13)
  1. NUZYRA [Suspect]
     Active Substance: OMADACYCLINE
     Indication: Mycobacterium avium complex infection
     Dosage: 150 MG, 1X/DAY, EVERY MORNING
     Route: 048
     Dates: start: 202307, end: 2023
  2. NUZYRA [Suspect]
     Active Substance: OMADACYCLINE
     Dosage: 150 MG, 1X/DAY, EVERY MORNING
     Route: 048
     Dates: start: 2023, end: 20230914
  3. NUZYRA [Suspect]
     Active Substance: OMADACYCLINE
     Dosage: 150 MG, 1X/DAY, EVERY MORNING
     Route: 048
     Dates: start: 20230917
  4. NUZYRA [Suspect]
     Active Substance: OMADACYCLINE
     Dosage: 150 MG, 1X/DAY, EVERY MORNING
     Route: 048
  5. NUZYRA [Suspect]
     Active Substance: OMADACYCLINE
     Dosage: 150 MG, 1X/DAY EVERY MORNING
  6. CRESTOR [Concomitant]
     Active Substance: ROSUVASTATIN CALCIUM
  7. PROBIOTICS NOS [Concomitant]
     Active Substance: PROBIOTICS NOS
  8. ZOFRAN [Concomitant]
     Active Substance: ONDANSETRON HYDROCHLORIDE
     Dosage: UNK, AS NEEDED
  9. PEPCID [Concomitant]
     Active Substance: FAMOTIDINE
  10. DALIRESP [Concomitant]
     Active Substance: ROFLUMILAST
  11. PROTONIX [Concomitant]
     Active Substance: PANTOPRAZOLE SODIUM
  12. AZITHROMYCIN [Concomitant]
     Active Substance: AZITHROMYCIN
  13. ARIKAYCE [Concomitant]
     Active Substance: AMIKACIN

REACTIONS (10)
  - Loss of consciousness [Recovered/Resolved]
  - Oxygen saturation decreased [Recovering/Resolving]
  - Thyroid disorder [Unknown]
  - Herpes zoster [Unknown]
  - Foot fracture [Unknown]
  - Sternal fracture [Unknown]
  - Anaemia [Unknown]
  - Diarrhoea [Recovered/Resolved]
  - Off label use [Not Recovered/Not Resolved]
  - Product dose omission issue [Recovered/Resolved]

NARRATIVE: CASE EVENT DATE: 20230101
